FAERS Safety Report 6728661-2 (Version None)
Quarter: 2010Q2

REPORT INFORMATION
  Report Type: 
  Country: None (occurrence: None)
  Receive Date: 20100517
  Receipt Date: 20100504
  Transmission Date: 20101027
  Serious: Yes (Hospitalization)
  Sender: FDA-Public Use
  Company Number: IE-GILEAD-2010-0026467

PATIENT
  Sex: Male
  Weight: 57.1 kg

DRUGS (11)
  1. AZTREONAM LYSINE [Suspect]
     Indication: CYSTIC FIBROSIS
     Route: 055
     Dates: start: 20091112, end: 20091209
  2. AQUADEKS [Concomitant]
     Indication: MALABSORPTION
  3. AZITHROMYCIN [Concomitant]
     Indication: CYSTIC FIBROSIS LUNG
  4. CALCIUM CARBONATE [Concomitant]
     Indication: OSTEOPOROSIS PROPHYLAXIS
  5. PULMOZYME [Concomitant]
     Indication: CYSTIC FIBROSIS LUNG
  6. ESOMEORAZOLE [Concomitant]
     Indication: GASTROOESOPHAGEAL REFLUX DISEASE
  7. FLUTICASONE PROPIONATE [Concomitant]
     Indication: RHINITIS
  8. FOSAMAX [Concomitant]
     Indication: OSTEOPENIA
  9. PANCREATIC ENZYMES [Concomitant]
     Indication: PANCREATIC INSUFFICIENCY
  10. SALBUTAMOL [Concomitant]
     Indication: CYSTIC FIBROSIS LUNG
  11. SYMBICORT [Concomitant]
     Indication: ASTHMA

REACTIONS (1)
  - CYSTIC FIBROSIS [None]
